FAERS Safety Report 11771737 (Version 1)
Quarter: 2015Q4

REPORT INFORMATION
  Report Type: Spontaneous
  Country: US (occurrence: None)
  Receive Date: 20151123
  Receipt Date: 20151123
  Transmission Date: 20160304
  Serious: Yes (Other)
  Sender: FDA-Public Use
  Company Number: None

PATIENT
  Age: 32 Year
  Sex: Female
  Weight: 61.24 kg

DRUGS (1)
  1. TERBUTALINE SULFATE 2.5 MG [Suspect]
     Active Substance: TERBUTALINE SULFATE
     Indication: PREMATURE LABOUR
     Dosage: 5X/DAY
     Route: 048
     Dates: start: 20010310, end: 20010501

REACTIONS (5)
  - Dyspnoea exertional [None]
  - Attention deficit/hyperactivity disorder [None]
  - Maternal drugs affecting foetus [None]
  - Lethargy [None]
  - Educational problem [None]

NARRATIVE: CASE EVENT DATE: 20010521
